FAERS Safety Report 20317634 (Version 1)
Quarter: 2022Q1

REPORT INFORMATION
  Report Type: Spontaneous
  Country: CA (occurrence: CA)
  Receive Date: 20220110
  Receipt Date: 20220110
  Transmission Date: 20220423
  Serious: Yes (Hospitalization)
  Sender: FDA-Public Use
  Company Number: CA-TEVA-2021-CA-1996499

PATIENT
  Age: 84 Year
  Sex: Male

DRUGS (14)
  1. CIPROFLOXACIN [Suspect]
     Active Substance: CIPROFLOXACIN
     Indication: Streptococcal infection
     Dosage: 1000 MILLIGRAM DAILY; THERAPY DURATION:10.0 DAYS
     Route: 048
  2. CIPROFLOXACIN [Suspect]
     Active Substance: CIPROFLOXACIN
     Indication: Staphylococcal infection
  3. CIPROFLOXACIN [Suspect]
     Active Substance: CIPROFLOXACIN
     Indication: Pseudomonas infection
  4. ONDANSETRON [Suspect]
     Active Substance: ONDANSETRON
     Indication: Nausea
     Route: 042
  5. CEFAZOLIN [Concomitant]
     Active Substance: CEFAZOLIN
  6. CEFTAZIDIME [Concomitant]
     Active Substance: CEFTAZIDIME
  7. CEFTRIAXONE [Concomitant]
     Active Substance: CEFTRIAXONE
  8. CLOXACILLIN [Concomitant]
     Active Substance: CLOXACILLIN
  9. FOSFOMYCIN [Concomitant]
     Active Substance: FOSFOMYCIN
  10. GENTAMICIN [Concomitant]
     Active Substance: GENTAMICIN
  11. INVANZ [Concomitant]
     Active Substance: ERTAPENEM SODIUM
  12. MEROPENEM [Concomitant]
     Active Substance: MEROPENEM
  13. METRONIDAZOLE [Concomitant]
     Active Substance: METRONIDAZOLE
  14. PIPERACILLIN SODIUM\TAZOBACTAM SODIUM [Concomitant]
     Active Substance: PIPERACILLIN SODIUM\TAZOBACTAM SODIUM

REACTIONS (10)
  - Acute kidney injury [Recovered/Resolved]
  - Arterial angioplasty [Recovered/Resolved]
  - Decreased appetite [Recovered/Resolved]
  - Fall [Recovered/Resolved]
  - Foot amputation [Recovered/Resolved]
  - Hypokalaemia [Recovered/Resolved]
  - Nausea [Recovered/Resolved]
  - Pathogen resistance [Recovered/Resolved]
  - Vomiting [Recovered/Resolved]
  - Drug ineffective [Recovered/Resolved]
